FAERS Safety Report 4638766-8 (Version None)
Quarter: 2005Q2

REPORT INFORMATION
  Report Type: 
  Country: None (occurrence: None)
  Receive Date: 20050328
  Receipt Date: 20050125
  Transmission Date: 20051028
  Serious: No
  Sender: FDA-Public Use
  Company Number: US_0411108646

PATIENT
  Age: 45 Year
  Sex: Male
  Weight: 68 kg

DRUGS (2)
  1. STRATTERA [Suspect]
     Indication: DISTURBANCE IN ATTENTION
     Dosage: 40 MG DAY
     Dates: start: 20041118
  2. WELLBUTRIN [Concomitant]

REACTIONS (7)
  - ASTHENIA [None]
  - CONSTIPATION [None]
  - DRY MOUTH [None]
  - DYSARTHRIA [None]
  - ERECTILE DYSFUNCTION [None]
  - NASOPHARYNGITIS [None]
  - STOMACH DISCOMFORT [None]
